FAERS Safety Report 10474659 (Version 4)
Quarter: 2015Q1

REPORT INFORMATION
  Report Type: Spontaneous
  Country: CO (occurrence: CO)
  Receive Date: 20140925
  Receipt Date: 20150219
  Transmission Date: 20150720
  Serious: Yes (Other)
  Sender: FDA-Public Use
  Company Number: CO-AMGEN-COLSP2014072990

PATIENT
  Sex: Female

DRUGS (1)
  1. PROLIA [Suspect]
     Active Substance: DENOSUMAB
     Indication: PRODUCT USED FOR UNKNOWN INDICATION
     Dosage: UNK
     Route: 065

REACTIONS (6)
  - Osteonecrosis [Not Recovered/Not Resolved]
  - Surgery [Unknown]
  - Bone loss [Not Recovered/Not Resolved]
  - Gingival recession [Not Recovered/Not Resolved]
  - Tooth loss [Not Recovered/Not Resolved]
  - Jaw fracture [Not Recovered/Not Resolved]
